FAERS Safety Report 15135768 (Version 1)
Quarter: 2018Q3

REPORT INFORMATION
  Report Type: Spontaneous
  Country: US (occurrence: US)
  Receive Date: 20180617
  Receipt Date: 20180617
  Transmission Date: 20181010
  Serious: No
  Sender: FDA-Public Use
  Company Number: None

PATIENT
  Age: 54 Year
  Sex: Male
  Weight: 114.75 kg

DRUGS (5)
  1. METFORMIN [Suspect]
     Active Substance: METFORMIN HYDROCHLORIDE
  2. LUCENTIS [Suspect]
     Active Substance: RANIBIZUMAB
     Indication: DIABETIC RETINOPATHY
     Route: 047
     Dates: start: 20180615
  3. NOVALIN 70/30 INSULIN [Concomitant]
  4. PIOGLITAZONE. [Concomitant]
     Active Substance: PIOGLITAZONE
  5. LUCENTIS [Suspect]
     Active Substance: RANIBIZUMAB
     Indication: MACULAR OEDEMA
     Route: 047
     Dates: start: 20180615

REACTIONS (7)
  - Foreign body sensation in eyes [None]
  - Eye irritation [None]
  - Eye disorder [None]
  - Eye pain [None]
  - Vision blurred [None]
  - Sinus disorder [None]
  - Lacrimation increased [None]

NARRATIVE: CASE EVENT DATE: 20180615
